FAERS Safety Report 10009007 (Version 2)
Quarter: 2014Q1

REPORT INFORMATION
  Report Type: Spontaneous
  Country: US (occurrence: US)
  Receive Date: 20140313
  Receipt Date: 20140313
  Transmission Date: 20141002
  Serious: No
  Sender: FDA-Public Use
  Company Number: US-INCYTE CORPORATION-2012IN000839

PATIENT
  Age: 70 Year
  Sex: Female
  Weight: 63.04 kg

DRUGS (7)
  1. JAKAFI [Suspect]
     Indication: MYELOFIBROSIS
     Dosage: 10 MG, QD
     Route: 048
     Dates: start: 201201
  2. LEFLUNOMIDE [Concomitant]
     Dosage: 20 MG, UNK
  3. FOLIC ACID [Concomitant]
     Dosage: 1 MG, QD
  4. BENICAR [Concomitant]
     Dosage: 40 MG, QD
  5. HYDROCODONE BITARTRATE AND ACETAMINOPHEN [Concomitant]
     Dosage: 7.5/500, PRN
  6. COREG [Concomitant]
     Dosage: 6.25 MG, BID
  7. ALLEGRA [Concomitant]
     Dosage: 180 MG, QD

REACTIONS (3)
  - Fall [Unknown]
  - Herpes zoster [Not Recovered/Not Resolved]
  - Contusion [Unknown]
